FAERS Safety Report 23478894 (Version 1)
Quarter: 2024Q1

REPORT INFORMATION
  Report Type: Report from Study
  Country: US (occurrence: US)
  Receive Date: 20240205
  Receipt Date: 20240205
  Transmission Date: 20240409
  Serious: No
  Sender: FDA-Public Use
  Company Number: US-EXELIXIS-CABO-23070120

PATIENT
  Sex: Male

DRUGS (2)
  1. CABOMETYX [Suspect]
     Active Substance: CABOZANTINIB S-MALATE
     Indication: Renal cancer
     Dosage: 40 MG, QD
     Route: 048
     Dates: start: 202310, end: 20231212
  2. INLYTA [Concomitant]
     Active Substance: AXITINIB

REACTIONS (3)
  - Drug intolerance [Unknown]
  - Fatigue [Recovering/Resolving]
  - Asthenia [Unknown]
